FAERS Safety Report 10559883 (Version 2)
Quarter: 2014Q4

REPORT INFORMATION
  Report Type: Report from Study
  Country: KR (occurrence: KR)
  Receive Date: 20141103
  Receipt Date: 20141212
  Transmission Date: 20150529
  Serious: Yes (Hospitalization)
  Sender: FDA-Public Use
  Company Number: KR-SA-2014SA146100

PATIENT
  Age: 67 Year
  Sex: Male
  Weight: 58 kg

DRUGS (3)
  1. LANTUS [Suspect]
     Active Substance: INSULIN GLARGINE
     Indication: DIABETES MELLITUS
     Dosage: DOSE:18 UNIT(S)
     Route: 058
     Dates: start: 20141015
  2. LANTUS [Suspect]
     Active Substance: INSULIN GLARGINE
     Indication: DIABETES MELLITUS
     Dosage: DOSE:22 UNIT(S)
     Route: 058
     Dates: start: 201410
  3. DIAMICRON MR [Concomitant]
     Active Substance: GLICLAZIDE
     Indication: DIABETES MELLITUS
     Route: 048
     Dates: start: 20141015

REACTIONS (2)
  - Blood glucose increased [Unknown]
  - Blood potassium increased [Recovered/Resolved]

NARRATIVE: CASE EVENT DATE: 201410
